FAERS Safety Report 6260171-1 (Version None)
Quarter: 2009Q3

REPORT INFORMATION
  Report Type: 
  Country: None (occurrence: None)
  Receive Date: 20090708
  Receipt Date: 20090629
  Transmission Date: 20100115
  Serious: Yes (Other)
  Sender: FDA-Public Use
  Company Number: A0795585A

PATIENT
  Age: 59 Year
  Sex: Female

DRUGS (1)
  1. TYKERB [Suspect]
     Dosage: 250MG PER DAY
     Route: 048
     Dates: start: 20090625

REACTIONS (4)
  - DECREASED APPETITE [None]
  - DIARRHOEA [None]
  - DYSGRAPHIA [None]
  - INSOMNIA [None]
